FAERS Safety Report 4721781-3 (Version None)
Quarter: 2005Q3

REPORT INFORMATION
  Report Type: 
  Country: None (occurrence: None)
  Receive Date: 20050721
  Receipt Date: 20050412
  Transmission Date: 20060218
  Serious: No
  Sender: FDA-Public Use
  Company Number: US-BRISTOL-MYERS SQUIBB COMPANY-12931127

PATIENT
  Age: 29 Year
  Sex: Male

DRUGS (2)
  1. COUMADIN [Suspect]
     Indication: PERIPHERAL VASCULAR DISORDER
     Route: 048
  2. CHILDREN ASPIRIN [Concomitant]

REACTIONS (1)
  - ALOPECIA [None]
